FAERS Safety Report 24655737 (Version 2)
Quarter: 2025Q3

REPORT INFORMATION
  Report Type: Spontaneous
  Country: ZA (occurrence: ZA)
  Receive Date: 20241123
  Receipt Date: 20250810
  Transmission Date: 20251021
  Serious: Yes (Hospitalization)
  Sender: ALEXION PHARMACEUTICALS
  Company Number: ZA-AstraZeneca-CH-00749017A

PATIENT
  Age: 52 Year
  Sex: Male

DRUGS (7)
  1. DAPAGLIFLOZIN [Suspect]
     Active Substance: DAPAGLIFLOZIN
     Indication: Diabetes mellitus
  2. LEVOFLOXACIN [Concomitant]
     Active Substance: LEVOFLOXACIN
  3. Stilpane [Concomitant]
     Indication: Pain
  4. PREGABALIN [Concomitant]
     Active Substance: PREGABALIN
     Indication: Epilepsy
  5. DOCUSATE [Concomitant]
     Active Substance: DOCUSATE
  6. EPREX [Concomitant]
     Active Substance: ERYTHROPOIETIN
     Indication: Anaemia
  7. CARVEDILOL [Concomitant]
     Active Substance: CARVEDILOL
     Indication: Hypertension

REACTIONS (2)
  - Renal disorder [Unknown]
  - Gait inability [Unknown]
